FAERS Safety Report 9171143 (Version 1)
Quarter: 2013Q1

REPORT INFORMATION
  Report Type: Spontaneous
  Country: LV (occurrence: LV)
  Receive Date: 20130319
  Receipt Date: 20130319
  Transmission Date: 20140127
  Serious: Yes (Other)
  Sender: FDA-Public Use
  Company Number: LV-ROCHE-1203274

PATIENT
  Age: 59 Year
  Sex: Female
  Weight: 70 kg

DRUGS (2)
  1. MIRCERA [Suspect]
     Indication: NEPHROGENIC ANAEMIA
     Route: 058
     Dates: start: 20110601, end: 20121215
  2. MIRCERA [Suspect]
     Indication: RENAL FAILURE CHRONIC

REACTIONS (1)
  - Hallucination, visual [Recovered/Resolved]
